FAERS Safety Report 22619866 (Version 1)
Quarter: 2023Q2

REPORT INFORMATION
  Report Type: Spontaneous
  Country: US (occurrence: None)
  Receive Date: 20230616
  Receipt Date: 20230616
  Transmission Date: 20230722
  Serious: Yes (Hospitalization)
  Sender: FDA-Public Use
  Company Number: None

PATIENT
  Age: 29 Year
  Sex: Male
  Weight: 67 kg

DRUGS (2)
  1. KIMYRSA [Suspect]
     Active Substance: ORITAVANCIN DIPHOSPHATE
     Indication: Tenosynovitis
     Dosage: OTHER FREQUENCY : ONE TIME DOSE;?
     Route: 041
     Dates: start: 20230422, end: 20230422
  2. DEXTROSE [Concomitant]

REACTIONS (3)
  - Tremor [None]
  - Chills [None]
  - Infusion related reaction [None]

NARRATIVE: CASE EVENT DATE: 20230422
